FAERS Safety Report 8563561-7 (Version None)
Quarter: 2012Q3

REPORT INFORMATION
  Report Type: 
  Country: None (occurrence: None)
  Receive Date: 20120803
  Receipt Date: 20120723
  Transmission Date: 20120928
  Serious: Yes (Other)
  Sender: FDA-Public Use
  Company Number: US-009507513-1207USA011475

PATIENT

DRUGS (4)
  1. AMLODIPINE BESYLATE [Suspect]
  2. ZOCOR [Suspect]
     Route: 048
  3. PLETAL [Suspect]
     Dosage: 100 MG, BID
     Route: 048
  4. CANDESARTAN CILEXETIL [Suspect]
     Route: 048

REACTIONS (2)
  - RHABDOMYOLYSIS [None]
  - BLOOD CREATINE PHOSPHOKINASE INCREASED [None]
